FAERS Safety Report 23266271 (Version 1)
Quarter: 2023Q4

REPORT INFORMATION
  Report Type: Spontaneous
  Country: US (occurrence: US)
  Receive Date: 20231206
  Receipt Date: 20231206
  Transmission Date: 20240110
  Serious: No
  Sender: FDA-Public Use
  Company Number: US-drreddys-LIT/USA/23/0187947

PATIENT
  Age: 44 Year
  Sex: Female

DRUGS (2)
  1. DOXYCYCLINE [Suspect]
     Active Substance: DOXYCYCLINE
     Indication: Type IV hypersensitivity reaction
  2. TACROLIMUS [Suspect]
     Active Substance: TACROLIMUS
     Indication: Type IV hypersensitivity reaction
     Route: 061

REACTIONS (1)
  - Drug ineffective for unapproved indication [Unknown]
